FAERS Safety Report 5752712-5 (Version None)
Quarter: 2008Q2

REPORT INFORMATION
  Report Type: 
  Country: None (occurrence: None)
  Receive Date: 20080529
  Receipt Date: 20080521
  Transmission Date: 20081010
  Serious: Yes (Hospitalization)
  Sender: FDA-Public Use
  Company Number: US-PFIZER INC-2006053724

PATIENT
  Sex: Male
  Weight: 77 kg

DRUGS (14)
  1. SUTENT [Suspect]
     Indication: RENAL CELL CARCINOMA
     Route: 048
     Dates: start: 20060119, end: 20060529
  2. METOPROLOL TARTRATE [Concomitant]
     Route: 048
  3. SIMVASTATIN [Concomitant]
     Route: 048
  4. VITAMIN CAP [Concomitant]
     Route: 048
  5. HYDROCODONE BITARTRATE [Concomitant]
     Route: 048
  6. MEGACE [Concomitant]
     Route: 048
  7. PROCHLORPERAZINE [Concomitant]
     Route: 048
  8. METOCLOPRAMIDE [Concomitant]
     Route: 048
  9. ALUMINIUM HYDROXIDE/DIPHENHYDRAMINE/MAGNESIUM HYDROXIDE/LIDOCAINE [Concomitant]
     Route: 048
  10. ARANESP [Concomitant]
     Route: 058
  11. TRIAMCINOLONE ACETONIDE [Concomitant]
     Route: 048
  12. MAGIC MOUTHWASH [Concomitant]
     Route: 048
  13. PHOSLO [Concomitant]
     Route: 048
  14. SODIUM BICARBONATE [Concomitant]
     Route: 048

REACTIONS (1)
  - CONVULSION [None]
